FAERS Safety Report 9278508 (Version 2)
Quarter: 2013Q2

REPORT INFORMATION
  Report Type: Spontaneous
  Country: US (occurrence: US)
  Receive Date: 20130508
  Receipt Date: 20130610
  Transmission Date: 20140414
  Serious: No
  Sender: FDA-Public Use
  Company Number: US-009507513-1305USA003573

PATIENT
  Age: 36 Year
  Sex: Male
  Weight: 86.17 kg

DRUGS (4)
  1. CLARITIN-D 12 HOUR [Suspect]
     Indication: RESPIRATORY TRACT CONGESTION
     Dosage: UNK, UNKNOWN
     Route: 048
     Dates: start: 20130304, end: 20130501
  2. CLARITIN-D 12 HOUR [Suspect]
     Indication: MEDICAL OBSERVATION
  3. CLARITIN-D 12 HOUR [Suspect]
     Indication: HYPERSENSITIVITY
  4. PROVENTIL [Concomitant]
     Indication: PRODUCT USED FOR UNKNOWN INDICATION
     Dosage: UNK, UNKNOWN

REACTIONS (1)
  - Drug ineffective [Unknown]
